FAERS Safety Report 14228974 (Version 2)
Quarter: 2018Q4

REPORT INFORMATION
  Report Type: Report from Study
  Country: AT (occurrence: AT)
  Receive Date: 20171128
  Receipt Date: 20181217
  Transmission Date: 20190204
  Serious: Yes (Other)
  Sender: FDA-Public Use
  Company Number: AT-ROCHE-1952239

PATIENT

DRUGS (1)
  1. VISMODEGIB. [Suspect]
     Active Substance: VISMODEGIB
     Indication: BASAL CELL CARCINOMA
     Route: 048

REACTIONS (14)
  - Drug resistance [Unknown]
  - Dysgeusia [Unknown]
  - Hepatic enzyme increased [Unknown]
  - Fatigue [Unknown]
  - Blood lactate dehydrogenase increased [Unknown]
  - Blood creatine phosphokinase increased [Unknown]
  - Decreased appetite [Unknown]
  - Renal impairment [Unknown]
  - Electrolyte imbalance [Unknown]
  - Alopecia [Unknown]
  - Muscle spasms [Unknown]
  - Lipase increased [Unknown]
  - Weight decreased [Unknown]
  - Diarrhoea [Unknown]
